FAERS Safety Report 4356271-3 (Version None)
Quarter: 2004Q2

REPORT INFORMATION
  Report Type: 
  Country: None (occurrence: None)
  Receive Date: 20040511
  Receipt Date: 20040420
  Transmission Date: 20050107
  Serious: Yes (Other)
  Sender: FDA-Public Use
  Company Number: JP-JNJFOC-20040403231

PATIENT
  Age: 68 Year
  Sex: Male

DRUGS (5)
  1. ITRACONAZOLE [Suspect]
     Indication: ONYCHOMYCOSIS
     Dosage: SEE IMAGE
     Route: 048
     Dates: start: 20030727, end: 20040406
  2. ITRACONAZOLE [Suspect]
     Indication: ONYCHOMYCOSIS
     Dosage: SEE IMAGE
     Route: 048
     Dates: start: 20040410, end: 20040413
  3. WARFARIN SODIUM [Concomitant]
  4. AMLODIPINE BESYLATE [Concomitant]
  5. ALLOPURINOL [Concomitant]

REACTIONS (1)
  - DEAFNESS [None]
